FAERS Safety Report 13058218 (Version 1)
Quarter: 2016Q4

REPORT INFORMATION
  Report Type: Report from Study
  Country: US (occurrence: US)
  Receive Date: 20161223
  Receipt Date: 20161223
  Transmission Date: 20170207
  Serious: Yes (Hospitalization)
  Sender: FDA-Public Use
  Company Number: US-UCBSA-2016045631

PATIENT
  Age: 60 Year
  Sex: Female

DRUGS (10)
  1. PHENOBARBITAL. [Concomitant]
     Active Substance: PHENOBARBITAL
     Indication: PRODUCT USED FOR UNKNOWN INDICATION
     Dosage: UNK
  2. MOBIC [Concomitant]
     Active Substance: MELOXICAM
     Indication: MUSCULOSKELETAL PAIN
     Dosage: UNK
     Route: 048
  3. TOPAMAX [Concomitant]
     Active Substance: TOPIRAMATE
     Indication: PRODUCT USED FOR UNKNOWN INDICATION
     Dosage: 100 MG IN AM AND 200 MG IN PM, 2X/DAY (BID)
     Route: 048
  4. LEVOTHYROXINE. [Concomitant]
     Active Substance: LEVOTHYROXINE
     Indication: THYROID DISORDER
     Dosage: 50 MG, UNK
     Route: 048
  5. RANITIDINE. [Concomitant]
     Active Substance: RANITIDINE
     Indication: PRODUCT USED FOR UNKNOWN INDICATION
     Dosage: 150 MG, 2X/DAY (BID)
     Route: 048
  6. HYOSCYAMINE. [Concomitant]
     Active Substance: HYOSCYAMINE
     Indication: PRODUCT USED FOR UNKNOWN INDICATION
     Dosage: 0.375 MG, 2X/DAY (BID)
     Route: 048
  7. LEVETIRACETAM. [Suspect]
     Active Substance: LEVETIRACETAM
     Indication: PARTIAL SEIZURES
     Dosage: 500 MG, 2X/DAY (BID)
     Route: 048
     Dates: end: 2016
  8. LEVETIRACETAM. [Suspect]
     Active Substance: LEVETIRACETAM
     Indication: EPILEPSY
     Dosage: 1000 MG, 2X/DAY (BID)
     Dates: start: 201609, end: 201611
  9. LEVETIRACETAM. [Suspect]
     Active Substance: LEVETIRACETAM
     Dosage: 1250 MG, 2X/DAY (BID)
     Dates: start: 201611
  10. CARAFATE [Concomitant]
     Active Substance: SUCRALFATE
     Indication: IRRITABLE BOWEL SYNDROME
     Dosage: 2 TSPS , 2X/DAY (BID)
     Route: 048

REACTIONS (5)
  - Joint dislocation [Recovering/Resolving]
  - Fall [Recovered/Resolved]
  - Generalised tonic-clonic seizure [Recovered/Resolved]
  - Irritable bowel syndrome [Unknown]
  - Amnesia [Not Recovered/Not Resolved]

NARRATIVE: CASE EVENT DATE: 2016
